FAERS Safety Report 6381063-3 (Version None)
Quarter: 2009Q3

REPORT INFORMATION
  Report Type: 
  Country: None (occurrence: None)
  Receive Date: 20090929
  Receipt Date: 20090922
  Transmission Date: 20100115
  Serious: Yes (Hospitalization)
  Sender: FDA-Public Use
  Company Number: US-AMGEN-US366195

PATIENT
  Weight: 2.21 kg

DRUGS (18)
  1. ENBREL [Suspect]
     Route: 064
     Dates: start: 20080617, end: 20080718
  2. MULTI-VITAMINS [Concomitant]
     Route: 064
     Dates: start: 20080721, end: 20080917
  3. OXYCODONE HCL [Concomitant]
     Route: 064
     Dates: start: 20080703, end: 20090402
  4. VITAMIN TAB [Concomitant]
     Route: 064
     Dates: start: 20080918, end: 20090402
  5. MORPHINE [Concomitant]
     Route: 064
     Dates: start: 20080617, end: 20080721
  6. ALBUTEROL [Concomitant]
     Route: 064
     Dates: start: 20080617, end: 20080806
  7. METROGEL [Concomitant]
     Route: 064
     Dates: start: 20080826, end: 20080901
  8. TYLENOL (CAPLET) [Concomitant]
     Route: 064
     Dates: start: 20080617, end: 20090402
  9. TUMS [Concomitant]
     Route: 064
     Dates: start: 20080617, end: 20090116
  10. BENADRYL [Concomitant]
     Route: 064
     Dates: start: 20080617, end: 20090220
  11. AZITHROMYCIN [Concomitant]
     Route: 064
     Dates: start: 20081006, end: 20081013
  12. PREDNISONE TAB [Concomitant]
     Route: 064
     Dates: start: 20081010, end: 20090125
  13. SIMETHICONE [Concomitant]
     Route: 064
     Dates: start: 20080721, end: 20080721
  14. TOBRADEX [Concomitant]
     Route: 064
     Dates: start: 20080909, end: 20090926
  15. PEPCID [Concomitant]
     Route: 064
     Dates: start: 20090116, end: 20090402
  16. COLACE [Concomitant]
     Route: 064
     Dates: start: 20090116, end: 20090402
  17. MACROBID [Concomitant]
     Route: 064
     Dates: start: 20090224, end: 20090228
  18. TERCONAZOLE [Concomitant]
     Route: 064
     Dates: start: 20090224, end: 20090302

REACTIONS (1)
  - PYLORIC STENOSIS [None]
